FAERS Safety Report 10906727 (Version 2)
Quarter: 2015Q2

REPORT INFORMATION
  Report Type: Spontaneous
  Country: US (occurrence: US)
  Receive Date: 20150312
  Receipt Date: 20150417
  Transmission Date: 20150821
  Serious: No
  Sender: FDA-Public Use
  Company Number: US-BIOGENIDEC-2015BI024937

PATIENT
  Sex: Female

DRUGS (2)
  1. TECFIDERA [Suspect]
     Active Substance: DIMETHYL FUMARATE
     Indication: MULTIPLE SCLEROSIS
     Dates: start: 20140324, end: 20150115
  2. REBIF [Concomitant]
     Active Substance: INTERFERON BETA-1A
     Dates: start: 201501

REACTIONS (1)
  - Drug ineffective [Recovered/Resolved]
